FAERS Safety Report 8346630-6 (Version None)
Quarter: 2012Q2

REPORT INFORMATION
  Report Type: 
  Country: None (occurrence: None)
  Receive Date: 20120509
  Receipt Date: 20120504
  Transmission Date: 20120825
  Serious: Yes (Hospitalization, Other)
  Sender: FDA-Public Use
  Company Number: PHHY2009CA47672

PATIENT
  Sex: Female

DRUGS (10)
  1. TENORMIN [Concomitant]
  2. NORVASC [Concomitant]
  3. DUCOSATE [Concomitant]
  4. SANDOSTATIN LAR [Suspect]
     Indication: ACROMEGALY
     Dosage: 30 MG, EVERY 3 WEEKS
     Route: 030
     Dates: start: 19991019
  5. DIOVAN [Concomitant]
  6. HYDROCHLOROTHIAZIDE [Concomitant]
  7. ACTASE [Concomitant]
  8. POTASSIUM SUPPLEMENTS [Concomitant]
  9. CRESTOR [Concomitant]
  10. LASIX [Concomitant]

REACTIONS (4)
  - CYSTITIS [None]
  - DIARRHOEA [None]
  - BLOOD PRESSURE SYSTOLIC INCREASED [None]
  - MYOCARDIAL INFARCTION [None]
